FAERS Safety Report 5546760-8 (Version None)
Quarter: 2007Q4

REPORT INFORMATION
  Report Type: 
  Country: None (occurrence: None)
  Receive Date: 20071207
  Receipt Date: 20071207
  Transmission Date: 20080405
  Serious: Yes (Other)
  Sender: FDA-Public Use
  Company Number: None

PATIENT
  Sex: Female

DRUGS (9)
  1. REVLIMID [Suspect]
     Indication: MULTIPLE MYELOMA
     Dosage: 15MG  DAILY 21D/28D  PO
     Route: 048
  2. DECADRON [Concomitant]
  3. PAMIDRONATE DISODIUM [Concomitant]
  4. COUMADIN [Concomitant]
  5. FAMOTADINE [Concomitant]
  6. NIFEDCAL [Concomitant]
  7. NYSTATIN [Concomitant]
  8. SIMVASTATIN [Concomitant]
  9. ATENOLOL [Concomitant]

REACTIONS (1)
  - NEUTROPENIA [None]
